FAERS Safety Report 8759278 (Version 1)
Quarter: 2012Q4

REPORT INFORMATION
  Report Type: Report from Study
  Country: CH (occurrence: US)
  Receive Date: 20120829
  Receipt Date: 20120829
  Transmission Date: 20130627
  Serious: Yes (Other)
  Sender: FDA-Public Use
  Company Number: US-WATSON-2012-14582

PATIENT
  Age: 53 Year
  Sex: Female

DRUGS (2)
  1. TRELSTAR (WATSON LABORATORIES) [Suspect]
     Indication: BREAST CANCER
     Dosage: 3.75 mg, once a month
     Route: 030
     Dates: start: 20050401, end: 20100326
  2. EXEMESTANE [Suspect]
     Indication: OOPHORECTOMY
     Dosage: 25 mg, UNK
     Route: 048
     Dates: start: 20050402, end: 20100415

REACTIONS (1)
  - Fracture [Recovered/Resolved]
